FAERS Safety Report 8532533-0 (Version None)
Quarter: 2012Q3

REPORT INFORMATION
  Report Type: 
  Country: None (occurrence: None)
  Receive Date: 20120724
  Receipt Date: 20120713
  Transmission Date: 20120928
  Serious: No
  Sender: FDA-Public Use
  Company Number: US-PFIZER INC-2012169692

PATIENT
  Sex: Male

DRUGS (4)
  1. TAPAZOLE [Suspect]
     Indication: THYROID DISORDER
     Dosage: 25 MG, (10MG AT ONE TIME THEN 10MG AND THEN 5MG (HALF TABLET, TOTAL THREE TIMES A DAY)
     Route: 048
  2. TAPAZOLE [Suspect]
     Dosage: UNK, (FURTHER INCREASED TO THREE TABLETS)
  3. TAPAZOLE [Suspect]
     Dosage: UNK, (SINCE 10 YEARS TWO TABLETS OF 10MG DAILY)
  4. TAPAZOLE [Suspect]
     Dosage: UNK, (INCREASED TO TWO AND HALF TABLET OF 10MG BY SPLITTING TWO TIMES A DAY WHICH HE MENTIONED)

REACTIONS (1)
  - HEADACHE [None]
